FAERS Safety Report 17930104 (Version 1)
Quarter: 2020Q2

REPORT INFORMATION
  Report Type: Spontaneous
  Country: US (occurrence: US)
  Receive Date: 20200623
  Receipt Date: 20200623
  Transmission Date: 20200714
  Serious: Yes (Disabling)
  Sender: FDA-Public Use
  Company Number: None

PATIENT
  Age: 58 Year
  Sex: Female

DRUGS (5)
  1. LEVOFLOXACIN. [Suspect]
     Active Substance: LEVOFLOXACIN
     Indication: DRUG THERAPY
     Dates: start: 20200428, end: 20200507
  2. ENOVA [Concomitant]
  3. OCCUVITE 50+ [Concomitant]
  4. SYNTHROID (GENERIC) [Concomitant]
  5. LISINOPRIL. [Concomitant]
     Active Substance: LISINOPRIL

REACTIONS (7)
  - Joint swelling [None]
  - Tendon pain [None]
  - Aortic dilatation [None]
  - Mobility decreased [None]
  - Tendon disorder [None]
  - Swelling [None]
  - Musculoskeletal stiffness [None]

NARRATIVE: CASE EVENT DATE: 20200523
